FAERS Safety Report 9780914 (Version 1)
Quarter: 2013Q4

REPORT INFORMATION
  Report Type: Spontaneous
  Country: TR (occurrence: None)
  Receive Date: 20131220
  Receipt Date: 20131220
  Transmission Date: 20140711
  Serious: Yes (Hospitalization)
  Sender: FDA-Public Use
  Company Number: IPC201312-000515

PATIENT
  Age: 76 Year
  Sex: Male

DRUGS (1)
  1. METFORMIN HYDROCHLORIDE (METFORMIN HYDROCHLORIDE) [Suspect]

REACTIONS (2)
  - Depressed level of consciousness [None]
  - Lactic acidosis [None]
